FAERS Safety Report 11512257 (Version 1)
Quarter: 2015Q3

REPORT INFORMATION
  Report Type: Spontaneous
  Country: US (occurrence: US)
  Receive Date: 20150916
  Receipt Date: 20150916
  Transmission Date: 20151125
  Serious: Yes (Other)
  Sender: FDA-Public Use
  Company Number: US-ASTRAZENECA-2015SE86957

PATIENT
  Age: 81 Year
  Sex: Female

DRUGS (21)
  1. XGEVA [Concomitant]
     Active Substance: DENOSUMAB
  2. XARELTO [Concomitant]
     Active Substance: RIVAROXABAN
  3. IBRANCE [Suspect]
     Active Substance: PALBOCICLIB
     Dosage: 125MG 21 DAYS
     Route: 048
  4. KEFLEX [Concomitant]
     Active Substance: CEPHALEXIN
  5. GELNIQUE [Concomitant]
     Active Substance: OXYBUTYNIN\OXYBUTYNIN CHLORIDE
  6. SINGULAIR [Concomitant]
     Active Substance: MONTELUKAST SODIUM
  7. ULTRAM [Concomitant]
     Active Substance: TRAMADOL HYDROCHLORIDE
  8. ARIMIDEX [Suspect]
     Active Substance: ANASTROZOLE
     Route: 048
     Dates: start: 20110101
  9. ASPIRIN. [Concomitant]
     Active Substance: ASPIRIN
  10. TRIPLE MIX [Concomitant]
  11. METOPROLOL TARTRATE. [Concomitant]
     Active Substance: METOPROLOL TARTRATE
  12. SILVERMED [Concomitant]
  13. FISH OIL [Concomitant]
     Active Substance: FISH OIL
  14. FLONASE [Concomitant]
     Active Substance: FLUTICASONE PROPIONATE
  15. ICAPS [Concomitant]
     Active Substance: MINERALS\VITAMINS
  16. LYSINE [Concomitant]
     Active Substance: LYSINE
  17. MELOXICAM. [Concomitant]
     Active Substance: MELOXICAM
  18. DEXAMETHASONE. [Concomitant]
     Active Substance: DEXAMETHASONE
  19. ERGOCALCIFEROL. [Concomitant]
     Active Substance: ERGOCALCIFEROL
  20. ADVAIR HFA [Concomitant]
     Active Substance: FLUTICASONE PROPIONATE\SALMETEROL XINAFOATE
  21. CALCIUM WITH VITMAIN D AND K [Concomitant]

REACTIONS (5)
  - Metastases to bone [Unknown]
  - Haematuria [Unknown]
  - Bladder mass [Unknown]
  - Metastases to liver [Unknown]
  - Haemangioma [Unknown]

NARRATIVE: CASE EVENT DATE: 20150715
